FAERS Safety Report 15393761 (Version 3)
Quarter: 2020Q1

REPORT INFORMATION
  Report Type: Spontaneous
  Country: US (occurrence: US)
  Receive Date: 20180917
  Receipt Date: 20200214
  Transmission Date: 20200409
  Serious: No
  Sender: FDA-Public Use
  Company Number: US-PFIZER INC-2018374987

PATIENT
  Age: 66 Year
  Sex: Male

DRUGS (2)
  1. REVATIO [Suspect]
     Active Substance: SILDENAFIL CITRATE
     Indication: PULMONARY HYPERTENSION
     Dosage: 240 MG, DAILY (20, MG TAKE 4 TABLETS BY MOUTH EVERY 8 HOURS)
     Route: 048
  2. REVATIO [Suspect]
     Active Substance: SILDENAFIL CITRATE
     Dosage: 80 MG, 3X/DAY (4 TABLETS BY MOUTH EVERY 8 HOURS)
     Route: 048

REACTIONS (2)
  - Prescribed overdose [Unknown]
  - Dyspnoea [Unknown]
